FAERS Safety Report 15686926 (Version 2)
Quarter: 2019Q1

REPORT INFORMATION
  Report Type: Spontaneous
  Country: US (occurrence: US)
  Receive Date: 20181204
  Receipt Date: 20190131
  Transmission Date: 20190417
  Serious: No
  Sender: FDA-Public Use
  Company Number: US-ACTELION-A-US2018-183001

PATIENT
  Age: 43 Year
  Sex: Female
  Weight: 68.27 kg

DRUGS (3)
  1. WARFARIN [Concomitant]
     Active Substance: WARFARIN
  2. LETAIRIS [Concomitant]
     Active Substance: AMBRISENTAN
  3. VENTAVIS [Suspect]
     Active Substance: ILOPROST
     Indication: PULMONARY ARTERIAL HYPERTENSION
     Dosage: 5 MCG (6 -9 TIMES DAILY)
     Route: 055
     Dates: start: 201201

REACTIONS (3)
  - Abdominal pain upper [Unknown]
  - Ulcer [Unknown]
  - Bronchitis [Not Recovered/Not Resolved]
